FAERS Safety Report 6516103-1 (Version None)
Quarter: 2009Q4

REPORT INFORMATION
  Report Type: 
  Country: None (occurrence: None)
  Receive Date: 20091223
  Receipt Date: 20091216
  Transmission Date: 20100525
  Serious: Yes (Hospitalization)
  Sender: FDA-Public Use
  Company Number: US-WYE-H09661809

PATIENT
  Sex: Female
  Weight: 74.91 kg

DRUGS (9)
  1. DESVENLAFAXINE SUCCINATE MONOHYDRATE [Suspect]
     Indication: MENOPAUSAL SYMPTOMS
     Route: 048
     Dates: start: 20080904, end: 20080910
  2. DESVENLAFAXINE SUCCINATE MONOHYDRATE [Suspect]
     Route: 048
     Dates: start: 20080911, end: 20090410
  3. DIHYDROXYALUMINUM SODIUM CARBONATE [Concomitant]
     Indication: DYSPEPSIA
     Route: 048
     Dates: start: 20090109, end: 20090109
  4. ADVIL [Concomitant]
     Indication: HEADACHE
     Route: 048
     Dates: start: 20081220, end: 20081220
  5. ADVIL [Concomitant]
     Indication: BACK PAIN
     Route: 048
     Dates: start: 20090224, end: 20090224
  6. MINOCIN [Concomitant]
     Indication: FOLLICULITIS
     Route: 048
     Dates: start: 20090311, end: 20090325
  7. LIPITOR [Concomitant]
     Indication: HYPERCHOLESTEROLAEMIA
     Dates: start: 20060101
  8. IBUPROFEN [Concomitant]
     Indication: ARTHRALGIA
     Route: 048
     Dates: start: 20081101, end: 20081101
  9. IBUPROFEN [Concomitant]
     Route: 048
     Dates: start: 20081201, end: 20081201

REACTIONS (10)
  - AGEUSIA [None]
  - ERYTHEMA [None]
  - HYPERTENSION [None]
  - HYPOAESTHESIA [None]
  - PAIN IN EXTREMITY [None]
  - PARAESTHESIA [None]
  - PRURITUS [None]
  - RASH [None]
  - STOMATITIS [None]
  - SWOLLEN TONGUE [None]
